FAERS Safety Report 5200772-2 (Version None)
Quarter: 2006Q4

REPORT INFORMATION
  Report Type: 
  Country: None (occurrence: None)
  Receive Date: 20061016
  Receipt Date: 20060711
  Transmission Date: 20070319
  Serious: No
  Sender: FDA-Public Use
  Company Number: 2006SP002660

PATIENT
  Age: 66 Year
  Sex: Female
  Weight: 70.3075 kg

DRUGS (3)
  1. LUNESTA [Suspect]
     Indication: INITIAL INSOMNIA
     Dosage: 2 MG, HS, ORAL
     Route: 048
     Dates: start: 20060621, end: 20060622
  2. SYNTHROID [Concomitant]
  3. ANDROID [Concomitant]

REACTIONS (3)
  - DRUG INEFFECTIVE [None]
  - HEART RATE INCREASED [None]
  - INSOMNIA [None]
